FAERS Safety Report 4423058-2 (Version None)
Quarter: 2004Q3

REPORT INFORMATION
  Report Type: 
  Country: None (occurrence: None)
  Receive Date: 20040806
  Receipt Date: 20040721
  Transmission Date: 20050211
  Serious: Yes (Other)
  Sender: FDA-Public Use
  Company Number: USA040773192

PATIENT
  Age: 68 Year
  Sex: Female
  Weight: 73 kg

DRUGS (7)
  1. EVISTA [Suspect]
  2. FORTEO [Suspect]
     Indication: MULTIPLE FRACTURES
     Dosage: 20 UG/1 DAY
     Dates: start: 20040611
  3. HIGH BLOOD PRESSURE MEDICATION [Concomitant]
  4. TUMS (CALCIUM CARBONATE) [Concomitant]
  5. ASPIRIN [Concomitant]
  6. LIPITOR [Concomitant]
  7. ACTONEL [Concomitant]

REACTIONS (13)
  - BALANCE DISORDER [None]
  - BODY HEIGHT DECREASED [None]
  - CEREBROVASCULAR ACCIDENT [None]
  - DECREASED ACTIVITY [None]
  - DIZZINESS [None]
  - INJECTION SITE HAEMORRHAGE [None]
  - MULTIPLE FRACTURES [None]
  - NAUSEA [None]
  - PHARMACEUTICAL PRODUCT COMPLAINT [None]
  - SKIN INJURY [None]
  - SPINAL FRACTURE [None]
  - THORACIC VERTEBRAL FRACTURE [None]
  - WEIGHT INCREASED [None]
